FAERS Safety Report 9607872 (Version 2)
Quarter: 2013Q4

REPORT INFORMATION
  Report Type: Spontaneous
  Country: GB (occurrence: GB)
  Receive Date: 20131009
  Receipt Date: 20131010
  Transmission Date: 20140711
  Serious: Yes (Other)
  Sender: FDA-Public Use
  Company Number: GB-ROCHE-1283701

PATIENT
  Age: 36 Year
  Sex: Male

DRUGS (4)
  1. RIBAVIRIN [Suspect]
     Indication: HEPATITIS C
     Route: 048
  2. PEGINTERFERON ALFA-2B [Suspect]
     Indication: HEPATITIS C
     Route: 058
  3. INCIVO [Suspect]
     Indication: HEPATITIS C
     Route: 048
  4. INCIVO [Suspect]
     Dosage: OFF LABEL USE
     Route: 048
     Dates: start: 20130222

REACTIONS (5)
  - Decreased appetite [Not Recovered/Not Resolved]
  - Depressed mood [Not Recovered/Not Resolved]
  - Fatigue [Not Recovered/Not Resolved]
  - Yellow skin [Recovered/Resolved]
  - Off label use [Unknown]
